FAERS Safety Report 4580073-6 (Version None)
Quarter: 2005Q1

REPORT INFORMATION
  Report Type: 
  Country: None (occurrence: None)
  Receive Date: 20050210
  Receipt Date: 20050131
  Transmission Date: 20050727
  Serious: Yes (Other)
  Sender: FDA-Public Use
  Company Number: 2005013306

PATIENT
  Age: 65 Year
  Sex: Female
  Weight: 86.1834 kg

DRUGS (3)
  1. DETROL LA [Suspect]
     Indication: MICTURITION URGENCY
     Dosage: 4 MG/DAY (4 MG), ORAL
     Route: 048
     Dates: start: 20041206
  2. PYRIDOXINE HCL [Concomitant]
  3. CALCIUM (CALCIUM) [Concomitant]

REACTIONS (11)
  - ABDOMINAL DISTENSION [None]
  - ARTHRALGIA [None]
  - DIFFICULTY IN WALKING [None]
  - FATIGUE [None]
  - INSOMNIA [None]
  - MICTURITION URGENCY [None]
  - MYALGIA [None]
  - NECK PAIN [None]
  - NERVOUS SYSTEM DISORDER [None]
  - PAIN IN EXTREMITY [None]
  - URINARY INCONTINENCE [None]
